FAERS Safety Report 19807980 (Version 3)
Quarter: 2021Q3

REPORT INFORMATION
  Report Type: Report from Study
  Country: BR (occurrence: BR)
  Receive Date: 20210908
  Receipt Date: 20210930
  Transmission Date: 20211014
  Serious: Yes (Hospitalization)
  Sender: FDA-Public Use
  Company Number: BR-TAKEDA-2021TUS055303

PATIENT
  Age: 20 Year
  Sex: Male

DRUGS (2)
  1. METRONIDAZOLE. [Concomitant]
     Active Substance: METRONIDAZOLE
     Dosage: UNK
  2. VEDOLIZUMAB [Suspect]
     Active Substance: VEDOLIZUMAB
     Indication: CROHN^S DISEASE
     Dosage: 300 MILLIGRAM
     Route: 042
     Dates: start: 20210818

REACTIONS (9)
  - Chills [Recovering/Resolving]
  - Vomiting [Unknown]
  - Pain [Recovering/Resolving]
  - General symptom [Unknown]
  - Platelet count abnormal [Recovered/Resolved]
  - White blood cell count abnormal [Recovered/Resolved]
  - Feeling abnormal [Recovered/Resolved]
  - Infection [Recovering/Resolving]
  - Pyrexia [Recovering/Resolving]

NARRATIVE: CASE EVENT DATE: 20210819
